FAERS Safety Report 23843723 (Version 6)
Quarter: 2024Q3

REPORT INFORMATION
  Report Type: Spontaneous
  Country: TW (occurrence: TW)
  Receive Date: 20240510
  Receipt Date: 20240930
  Transmission Date: 20241017
  Serious: Yes (Other)
  Sender: PFIZER
  Company Number: TW-PFIZER INC-202400102178

PATIENT
  Sex: Female

DRUGS (1)
  1. BICILLIN L-A [Suspect]
     Active Substance: PENICILLIN G BENZATHINE
     Dosage: UNK
     Dates: start: 20240503, end: 20240503

REACTIONS (6)
  - Wrong technique in device usage process [Unknown]
  - Device physical property issue [Unknown]
  - Accidental exposure to product [Unknown]
  - Exposure to contaminated device [Unknown]
  - Injury associated with device [Unknown]
  - Erythema [Unknown]

NARRATIVE: CASE EVENT DATE: 20240503
